FAERS Safety Report 8342961-4 (Version None)
Quarter: 2012Q2

REPORT INFORMATION
  Report Type: 
  Country: None (occurrence: None)
  Receive Date: 20120508
  Receipt Date: 20120502
  Transmission Date: 20120825
  Serious: Yes (Hospitalization)
  Sender: FDA-Public Use
  Company Number: US-PFIZER INC-2011262036

PATIENT
  Sex: Female

DRUGS (3)
  1. XALKORI [Suspect]
     Indication: LUNG NEOPLASM MALIGNANT
     Dosage: 250 MG, 2X/DAY
     Dates: start: 20111018
  2. XALKORI [Suspect]
  3. ONDANSETRON [Concomitant]

REACTIONS (8)
  - VOMITING [None]
  - DECREASED APPETITE [None]
  - CHOKING SENSATION [None]
  - DEHYDRATION [None]
  - DYSPHAGIA [None]
  - NAUSEA [None]
  - DIARRHOEA [None]
  - MALAISE [None]
